FAERS Safety Report 6890069-7 (Version None)
Quarter: 2010Q3

REPORT INFORMATION
  Report Type: 
  Country: None (occurrence: None)
  Receive Date: 20100730
  Receipt Date: 20080728
  Transmission Date: 20110219
  Serious: No
  Sender: FDA-Public Use
  Company Number: US-PFIZER INC-2008062247

PATIENT
  Sex: Female
  Weight: 46.363 kg

DRUGS (5)
  1. LIPITOR [Suspect]
     Indication: BLOOD CHOLESTEROL INCREASED
     Dates: end: 20080101
  2. HMG COA REDUCTASE INHIBITORS [Suspect]
  3. CRESTOR [Suspect]
  4. ALL OTHER THERAPEUTIC PRODUCTS [Suspect]
  5. ALL OTHER THERAPEUTIC PRODUCTS [Concomitant]

REACTIONS (6)
  - ARTHRITIS [None]
  - BLOOD CHOLESTEROL INCREASED [None]
  - BODY HEIGHT DECREASED [None]
  - PAIN IN EXTREMITY [None]
  - RESPIRATORY DISORDER [None]
  - UNEVALUABLE EVENT [None]
